FAERS Safety Report 7004967-7 (Version None)
Quarter: 2010Q3

REPORT INFORMATION
  Report Type: 
  Country: None (occurrence: None)
  Receive Date: 20100920
  Receipt Date: 20100920
  Transmission Date: 20110219
  Serious: No
  Sender: FDA-Public Use
  Company Number: None

PATIENT
  Age: 79 Year
  Sex: Female

DRUGS (1)
  1. DORZOLAMIDE HYDROCHLORIDE/TIMOLOL MALEATE [Suspect]
     Indication: NORMAL TENSION GLAUCOMA
     Dosage: 1 DROP OU Q12 EYE DROPS
     Dates: start: 20100101

REACTIONS (2)
  - PRODUCT SUBSTITUTION ISSUE [None]
  - VISUAL FIELD DEFECT [None]
